FAERS Safety Report 5119952-X (Version None)
Quarter: 2006Q3

REPORT INFORMATION
  Report Type: 
  Country: None (occurrence: None)
  Receive Date: 20060929
  Receipt Date: 20060918
  Transmission Date: 20061208
  Serious: Yes (Hospitalization)
  Sender: FDA-Public Use
  Company Number: 2006113164

PATIENT
  Age: 65 Year
  Sex: Male

DRUGS (7)
  1. DOXORUBICIN HCL [Suspect]
     Indication: HEPATIC NEOPLASM MALIGNANT
     Dosage: 80 MG (FREQUENCY:  ONCE), INTRAVENOUS
     Route: 042
     Dates: start: 20060725, end: 20060725
  2. LIPIODOL (IODIZED OIL) [Suspect]
     Indication: HEPATIC NEOPLASM MALIGNANT
     Dosage: 10 MG (FREQUENCY:  ONCE), INTRAVENOUS
     Route: 042
     Dates: start: 20060725, end: 20060725
  3. ATENOLOL [Concomitant]
  4. LASIX [Concomitant]
  5. ESOMEPRAZOLE (ESOMEPRAZOLE) [Concomitant]
  6. PORTOLAC (LACTITOL) [Concomitant]
  7. MEGACE [Concomitant]

REACTIONS (3)
  - HEPATIC FUNCTION ABNORMAL [None]
  - LIVER ABSCESS [None]
  - PYREXIA [None]
